FAERS Safety Report 8757950 (Version 2)
Quarter: 2012Q4

REPORT INFORMATION
  Report Type: 
  Country: US (occurrence: US)
  Receive Date: 20120828
  Receipt Date: 20121003
  Transmission Date: 20130627
  Serious: No
  Sender: FDA-Public Use
  Company Number: US-PFIZER INC-2012207809

PATIENT
  Age: 19 Year
  Sex: Female
  Weight: 54 kg

DRUGS (1)
  1. CELEBREX [Suspect]
     Indication: RHEUMATOID ARTHRITIS
     Dosage: 200 mg, 2x/day
     Route: 048
     Dates: start: 201206, end: 20120817

REACTIONS (3)
  - Gait disturbance [Recovered/Resolved]
  - Arthralgia [Recovered/Resolved]
  - Pain [Recovered/Resolved]
